FAERS Safety Report 18471008 (Version 1)
Quarter: 2020Q4

REPORT INFORMATION
  Report Type: Spontaneous
  Country: US (occurrence: US)
  Receive Date: 20201106
  Receipt Date: 20201106
  Transmission Date: 20210114
  Serious: Yes (Hospitalization)
  Sender: FDA-Public Use
  Company Number: US-ASTRAZENECA-2020SF43583

PATIENT
  Sex: Female
  Weight: 69.9 kg

DRUGS (1)
  1. SYMBICORT [Suspect]
     Active Substance: BUDESONIDE\FORMOTEROL FUMARATE DIHYDRATE
     Indication: SARCOIDOSIS
     Dosage: 160/4.5MCG 2 PUFFS TWICE A DAY
     Route: 055
     Dates: start: 201701

REACTIONS (7)
  - Pulmonary mass [Unknown]
  - Malaise [Unknown]
  - Dyspnoea [Unknown]
  - Device dispensing error [Unknown]
  - Lung disorder [Unknown]
  - Aphonia [Not Recovered/Not Resolved]
  - Illness [Unknown]
